FAERS Safety Report 23330831 (Version 1)
Quarter: 2023Q4

REPORT INFORMATION
  Report Type: Spontaneous
  Country: GB (occurrence: GB)
  Receive Date: 20231222
  Receipt Date: 20231222
  Transmission Date: 20240109
  Serious: Yes (Hospitalization)
  Sender: FDA-Public Use
  Company Number: None

PATIENT
  Age: 65 Year

DRUGS (16)
  1. GABAPENTIN [Suspect]
     Active Substance: GABAPENTIN
     Dosage: TIME INTERVAL: 0.33333333 DAYS: DAILY DOSE: 1800 MG, ROA: UNKNOWN
     Route: 065
  2. QUININE SULFATE [Concomitant]
     Active Substance: QUININE SULFATE
     Dosage: AT NIGHT, DAILY DOSE: 200 MG
  3. ALFACALCIDOL [Concomitant]
     Active Substance: ALFACALCIDOL
     Dosage: DAILY DOSE: 1 UG
  4. TACROLIMUS [Concomitant]
     Active Substance: TACROLIMUS
     Dosage: DAILY DOSE: 5 MG
  5. WARFARIN [Concomitant]
     Active Substance: WARFARIN
     Dosage: 2MG WED, FRI 3MG REST OF WEEK
  6. PRAVASTATIN [Concomitant]
     Active Substance: PRAVASTATIN
     Dosage: AT NIGHT, DAILY DOSE: 20 MG
  7. CARBOCYSTEINE [Concomitant]
     Active Substance: CARBOCYSTEINE
     Dosage: TIME INTERVAL: 0.33333333 DAYS: DAILY DOSE: 2250 MG
  8. OILATUM [Concomitant]
     Dosage: TIME INTERVAL: AS NECESSARY
  9. ALBUTEROL [Concomitant]
     Active Substance: ALBUTEROL
     Dosage: ONE OR TWO PUFFS TO BE INHALED UP TO FOUR TIMES A DAY
     Route: 055
  10. BUMETANIDE [Concomitant]
     Active Substance: BUMETANIDE
     Dosage: ONE MANE AND ONE IN THE AFTERNOON, DAILY DOSE: 2 MG
  11. OMEPRAZOLE [Concomitant]
     Active Substance: OMEPRAZOLE
     Dosage: DAILY DOSE: 40 MG
  12. SODIUM BICARBONATE [Concomitant]
     Active Substance: SODIUM BICARBONATE
     Dosage: THREE TAKEN IN THE MORNING AND THREE TABLETS TAKEN AT NIGHT, DAILY DOSE: 3500 MG
  13. CALCIUM\CHOLECALCIFEROL [Concomitant]
     Active Substance: CALCIUM\CHOLECALCIFEROL
     Dosage: TIME INTERVAL: 0.33333333 DAYS: WITH MEALS, DAILY DOSE: 6 DOSAGE FORMS
  14. SYMBICORT [Concomitant]
     Active Substance: BUDESONIDE\FORMOTEROL FUMARATE DIHYDRATE
     Dosage: 200 / 6 TURBOHALER, DAILY DOSE: 2 DOSAGE FORMS
  15. ALLOPURINOL [Concomitant]
     Active Substance: ALLOPURINOL
     Dosage: DAILY DOSE: 100 MG
  16. AMITRIPTYLINE [Concomitant]
     Active Substance: AMITRIPTYLINE
     Dosage: TIME INTERVAL: 0.33333333 DAYS: DAILY DOSE: 30 MG

REACTIONS (1)
  - Myoclonus [Recovered/Resolved]
